FAERS Safety Report 9985892 (Version 2)
Quarter: 2014Q1

REPORT INFORMATION
  Report Type: Report from Study
  Country: JP (occurrence: JP)
  Receive Date: 20140307
  Receipt Date: 20140324
  Transmission Date: 20141002
  Serious: Yes (Hospitalization, Other)
  Sender: FDA-Public Use
  Company Number: JP-TAKEDA-2014TJP002410

PATIENT
  Age: 77 Year
  Sex: Female
  Weight: 41.3 kg

DRUGS (8)
  1. ALOGLIPTIN [Suspect]
     Indication: TYPE 2 DIABETES MELLITUS
     Dosage: 25 MG, QD
     Route: 048
     Dates: start: 20120329
  2. AMARYL [Concomitant]
     Indication: TYPE 2 DIABETES MELLITUS
     Dosage: 1 MG, 1 DAYS
     Route: 048
     Dates: end: 20120425
  3. AMARYL [Concomitant]
     Dosage: 0.5 MG, 1 DAYS
     Route: 048
     Dates: start: 20120426, end: 20120914
  4. AMARYL [Concomitant]
     Dosage: 0.5 MG, 1 DAYS
     Route: 048
     Dates: start: 20121109
  5. OLMETEC [Concomitant]
     Dosage: UNK
     Route: 048
  6. ADALAT CR [Concomitant]
     Dosage: UNK
     Route: 048
  7. REZALTAS [Concomitant]
     Dosage: UNK
     Route: 048
  8. AMLODIPINE                         /00972402/ [Concomitant]
     Dosage: UNK
     Route: 048

REACTIONS (1)
  - Cerebral infarction [Recovered/Resolved with Sequelae]
